FAERS Safety Report 4677241-1 (Version None)
Quarter: 2005Q2

REPORT INFORMATION
  Report Type: 
  Country: None (occurrence: None)
  Receive Date: 20050526
  Receipt Date: 20050512
  Transmission Date: 20051028
  Serious: Yes (Hospitalization)
  Sender: FDA-Public Use
  Company Number: 2005000906

PATIENT
  Age: 65 Year
  Sex: Male

DRUGS (5)
  1. ERLOTINIB HCL (TABLET) [Suspect]
     Indication: NON-SMALL CELL LUNG CANCER
     Dosage: 150 MG (QD), ORAL
     Route: 048
     Dates: start: 20050331, end: 20050421
  2. WARFARIN SODIUM [Suspect]
     Dates: start: 19900615, end: 20050421
  3. ASPIRIN [Concomitant]
  4. DIGOXIN [Concomitant]
  5. MOLSIDOMINE (MOLSIDOMINE) [Concomitant]

REACTIONS (1)
  - ANEURYSM [None]
